FAERS Safety Report 6370023-4 (Version None)
Quarter: 2009Q3

REPORT INFORMATION
  Report Type: 
  Country: None (occurrence: None)
  Receive Date: 20090923
  Receipt Date: 20071026
  Transmission Date: 20100115
  Serious: Yes (Hospitalization)
  Sender: FDA-Public Use
  Company Number: US-ASTRAZENECA-2006UW07758

PATIENT
  Age: 19150 Day
  Sex: Female
  Weight: 73.9 kg

DRUGS (14)
  1. SEROQUEL [Suspect]
     Indication: DEPRESSION
     Route: 048
     Dates: start: 20040601, end: 20060101
  2. SEROQUEL [Suspect]
     Indication: ANXIETY
     Route: 048
     Dates: start: 20040601, end: 20060101
  3. SEROQUEL [Suspect]
     Indication: INSOMNIA
     Route: 048
     Dates: start: 20040601, end: 20060101
  4. SEROQUEL [Suspect]
     Dosage: 15 - 25 MG
     Route: 048
     Dates: start: 20040607
  5. SEROQUEL [Suspect]
     Dosage: 15 - 25 MG
     Route: 048
     Dates: start: 20040607
  6. SEROQUEL [Suspect]
     Dosage: 15 - 25 MG
     Route: 048
     Dates: start: 20040607
  7. LIPITOR [Concomitant]
     Indication: BLOOD CHOLESTEROL
     Route: 048
  8. TRAZODONE [Concomitant]
     Indication: SLEEP DISORDER
     Route: 048
  9. ASPIRIN [Concomitant]
     Route: 048
  10. ATIVAN [Concomitant]
     Indication: ANXIETY
     Route: 048
  11. CELEXA [Concomitant]
     Route: 065
  12. HUMALOG [Concomitant]
     Dosage: STRENGTH 1000 ML / 10 ML, 2 - 8 UNITS FLUCTUATING
     Route: 058
  13. LANTUS [Concomitant]
     Dosage: 100 UNITS/ ML, 13 - 40 UNITS FLUCTUATING
     Route: 058
  14. ZOCOR [Concomitant]
     Route: 065

REACTIONS (15)
  - ANXIETY [None]
  - APPENDICITIS [None]
  - CERUMEN IMPACTION [None]
  - CONTUSION [None]
  - DIABETES MELLITUS [None]
  - EXCORIATION [None]
  - HAEMANGIOMA [None]
  - HAEMORRHOIDS [None]
  - HYPERGLYCAEMIA [None]
  - LIGAMENT SPRAIN [None]
  - MUSCULOSKELETAL PAIN [None]
  - OSTEOARTHRITIS [None]
  - POLYP [None]
  - ROTATOR CUFF SYNDROME [None]
  - URGE INCONTINENCE [None]
